FAERS Safety Report 15623509 (Version 7)
Quarter: 2019Q2

REPORT INFORMATION
  Report Type: Report from Study
  Country: US (occurrence: US)
  Receive Date: 20181115
  Receipt Date: 20190626
  Transmission Date: 20190711
  Serious: Yes (Hospitalization, Other)
  Sender: FDA-Public Use
  Company Number: US-ACTELION-A-NJ2018-166343

PATIENT
  Age: 79 Year
  Sex: Female

DRUGS (15)
  1. OPSUMIT [Suspect]
     Active Substance: MACITENTAN
     Dosage: UNK
     Route: 048
  2. ZOCOR [Concomitant]
     Active Substance: SIMVASTATIN
  3. LEVOTHYROXINE. [Concomitant]
     Active Substance: LEVOTHYROXINE
     Dosage: UNK
     Dates: start: 20180911
  4. CETRIZINE [Concomitant]
     Active Substance: CETIRIZINE HYDROCHLORIDE
     Dosage: UNK
     Dates: start: 20180911
  5. VITAMIN D [Concomitant]
     Active Substance: VITAMIN D NOS
  6. ASPIRIN. [Concomitant]
     Active Substance: ASPIRIN
     Dosage: UNK
     Dates: start: 20180911
  7. ESTER-C [Concomitant]
  8. LYRICA [Concomitant]
     Active Substance: PREGABALIN
  9. CITALOPRAM [Concomitant]
     Active Substance: CITALOPRAM HYDROBROMIDE
     Dosage: UNK
     Dates: start: 20180911
  10. SINGULAIR [Concomitant]
     Active Substance: MONTELUKAST SODIUM
     Dosage: UNK
     Dates: start: 20180911
  11. OPSUMIT [Suspect]
     Active Substance: MACITENTAN
     Indication: PULMONARY ARTERIAL HYPERTENSION
     Dosage: 10 MG, QD
     Route: 048
     Dates: start: 20170607
  12. FLONASE [Concomitant]
     Active Substance: FLUTICASONE PROPIONATE
  13. SIMVASTATIN. [Concomitant]
     Active Substance: SIMVASTATIN
  14. GLUCOSAMINE CHONDROITIN [Concomitant]
     Active Substance: CHONDROITIN SULFATE (BOVINE)\GLUCOSAMINE HYDROCHLORIDE
  15. PROTONIX [Concomitant]
     Active Substance: PANTOPRAZOLE SODIUM
     Dosage: UNK
     Dates: start: 20190325

REACTIONS (34)
  - Inflammation [Unknown]
  - Decreased immune responsiveness [Unknown]
  - Upper respiratory tract infection [Unknown]
  - Dysphagia [Unknown]
  - Syncope [Unknown]
  - Mineral supplementation [Unknown]
  - Lower gastrointestinal haemorrhage [Recovered/Resolved]
  - Red blood cell count decreased [Unknown]
  - Anaemia [Unknown]
  - Dyspnoea [Unknown]
  - Palpitations [Unknown]
  - Arthralgia [Unknown]
  - Nasal congestion [Unknown]
  - Haemoglobin decreased [Unknown]
  - Transfusion [Unknown]
  - Upper gastrointestinal haemorrhage [Recovered/Resolved]
  - Sinusitis [Unknown]
  - Ear pain [Not Recovered/Not Resolved]
  - Multiple allergies [Unknown]
  - Seasonal allergy [Unknown]
  - Asthenia [Recovered/Resolved]
  - Arteriovenous malformation [Recovered/Resolved with Sequelae]
  - Melaena [Recovered/Resolved]
  - Infection [Unknown]
  - Gastric disorder [Unknown]
  - Bronchitis [Unknown]
  - Acute sinusitis [Unknown]
  - Ear infection [Recovering/Resolving]
  - Hypotension [Recovered/Resolved]
  - Heart rate increased [Unknown]
  - Nasopharyngitis [Unknown]
  - Incontinence [Not Recovered/Not Resolved]
  - Condition aggravated [Not Recovered/Not Resolved]
  - Vestibular neuronitis [Unknown]

NARRATIVE: CASE EVENT DATE: 20170928
